FAERS Safety Report 11363704 (Version 1)
Quarter: 2015Q3

REPORT INFORMATION
  Report Type: Spontaneous
  Country: US (occurrence: None)
  Receive Date: 20150810
  Receipt Date: 20150810
  Transmission Date: 20151125
  Serious: No
  Sender: FDA-Public Use
  Company Number: None

PATIENT
  Age: 33 Year
  Sex: Female

DRUGS (1)
  1. HUMIRA [Suspect]
     Active Substance: ADALIMUMAB
     Dates: start: 20150715, end: 20150801

REACTIONS (5)
  - Injection site erythema [None]
  - Injection site rash [None]
  - Oral herpes [None]
  - Lymphadenopathy [None]
  - Headache [None]

NARRATIVE: CASE EVENT DATE: 20150801
